FAERS Safety Report 15722502 (Version 1)
Quarter: 2018Q4

REPORT INFORMATION
  Report Type: Report from Study
  Country: US (occurrence: US)
  Receive Date: 20181214
  Receipt Date: 20181214
  Transmission Date: 20190205
  Serious: Yes (Hospitalization)
  Sender: FDA-Public Use
  Company Number: US-TEVA-2018-US-945146

PATIENT
  Sex: Female

DRUGS (1)
  1. COPAXONE [Suspect]
     Active Substance: GLATIRAMER ACETATE
     Indication: MULTIPLE SCLEROSIS
     Route: 058
     Dates: start: 20150805

REACTIONS (5)
  - Mouth ulceration [Unknown]
  - Drug hypersensitivity [Unknown]
  - Pharyngeal ulceration [Unknown]
  - Viral infection [Recovering/Resolving]
  - Oral pain [Unknown]
